FAERS Safety Report 4679174-3 (Version None)
Quarter: 2005Q2

REPORT INFORMATION
  Report Type: 
  Country: None (occurrence: None)
  Receive Date: 20050526
  Receipt Date: 20050211
  Transmission Date: 20051028
  Serious: Yes (Other)
  Sender: FDA-Public Use
  Company Number: WAES 0502USA01520

PATIENT
  Age: 50 Year
  Sex: Female

DRUGS (5)
  1. VYTORIN [Suspect]
     Dosage: 10-20 MG/DAILY/PO
     Route: 048
     Dates: start: 20050208, end: 20050211
  2. COUMADIN [Concomitant]
  3. LASIX [Concomitant]
  4. ASPIRIN [Concomitant]
  5. METOPROLOL [Concomitant]

REACTIONS (2)
  - RASH MACULO-PAPULAR [None]
  - RASH PRURITIC [None]
